FAERS Safety Report 9728419 (Version 2)
Quarter: 2013Q4

REPORT INFORMATION
  Report Type: Spontaneous
  Country: CN (occurrence: CN)
  Receive Date: 20131204
  Receipt Date: 20131219
  Transmission Date: 20140711
  Serious: Yes (Hospitalization, Disabling)
  Sender: FDA-Public Use
  Company Number: CN-ASTELLAS-2013JP013281

PATIENT
  Age: 21 Year
  Sex: Female
  Weight: 60 kg

DRUGS (12)
  1. TACROLIMUS SUSTAINED-RELEASE CAPSULES [Suspect]
     Indication: RENAL TRANSPLANT
     Dosage: UNK
     Route: 048
     Dates: start: 20130830
  2. TACROLIMUS SUSTAINED-RELEASE CAPSULES [Suspect]
     Dosage: 1 MG, UID/QD
     Route: 048
     Dates: start: 20130916, end: 20131024
  3. TACROLIMUS SUSTAINED-RELEASE CAPSULES [Suspect]
     Dosage: UNK
     Route: 048
     Dates: end: 20131031
  4. ATG-FRESENIUS S [Suspect]
     Indication: RENAL TRANSPLANT
     Dosage: 120 MG, UID/QD
     Route: 042
     Dates: start: 20130830, end: 20130903
  5. CELLCEPT /01275102/ [Suspect]
     Indication: RENAL TRANSPLANT
     Dosage: UNK
     Route: 048
     Dates: start: 20130830
  6. METHYLPREDNISOLONE [Suspect]
     Indication: RENAL TRANSPLANT
     Dosage: UNK
     Route: 042
     Dates: start: 20130830, end: 20130905
  7. CEFUROXIME SODIUM [Concomitant]
     Indication: PYREXIA
     Dosage: 3 G, BID
     Route: 042
     Dates: start: 20131010
  8. GANCICLOVIR [Concomitant]
     Indication: PYREXIA
     Dosage: 0.25 G, UNKNOWN/D
     Route: 042
     Dates: start: 20131010
  9. GANCICLOVIR [Concomitant]
     Indication: ANTIINFLAMMATORY THERAPY
  10. MEROPENEM [Concomitant]
     Indication: INFECTION PROPHYLAXIS
     Dosage: 2 G, Q12 HOURS
     Route: 042
     Dates: start: 20131120, end: 20131122
  11. MEDICINE FOR COLD [Concomitant]
     Indication: PYREXIA
     Dosage: UNK
     Route: 048
     Dates: start: 201310
  12. ANTIINFLAMMATORY AGENTS [Concomitant]
     Dosage: UNK
     Route: 048
     Dates: start: 201310

REACTIONS (3)
  - Complications of transplanted kidney [Unknown]
  - Pneumonia cytomegaloviral [Recovering/Resolving]
  - Renal artery thrombosis [Recovered/Resolved with Sequelae]
